FAERS Safety Report 17008001 (Version 1)
Quarter: 2019Q4

REPORT INFORMATION
  Report Type: Spontaneous
  Country: CZ (occurrence: CZ)
  Receive Date: 20191108
  Receipt Date: 20191108
  Transmission Date: 20200122
  Serious: Yes (Other)
  Sender: FDA-Public Use
  Company Number: CZ-SUN PHARMACEUTICAL INDUSTRIES LTD-2019RR-227105

PATIENT
  Age: 66 Year
  Sex: Female

DRUGS (14)
  1. RITUXIMAB. [Suspect]
     Active Substance: RITUXIMAB
     Indication: MANTLE CELL LYMPHOMA
     Dosage: THREE R CHOP CYCLES
     Route: 065
     Dates: start: 201303, end: 201307
  2. CISPLATIN. [Suspect]
     Active Substance: CISPLATIN
     Indication: MANTLE CELL LYMPHOMA
     Dosage: R DHAP IMMUNOCHEMOTHERAPY, 3 CYCLES
     Route: 065
  3. DEXAMETHASONE. [Suspect]
     Active Substance: DEXAMETHASONE
     Indication: MANTLE CELL LYMPHOMA
     Dosage: R DHAP IMMUNOCHEMOTHERAPY, 3 CYCLES
     Route: 065
  4. RITUXIMAB. [Suspect]
     Active Substance: RITUXIMAB
     Dosage: THREE R ARA C CYCLES
     Route: 065
     Dates: start: 201303, end: 201307
  5. RITUXIMAB. [Suspect]
     Active Substance: RITUXIMAB
     Dosage: R DHAP IMMUNOCHEMOTHERAPY, 3 CYCLES
     Route: 065
  6. CYTARABINE. [Suspect]
     Active Substance: CYTARABINE
     Indication: MANTLE CELL LYMPHOMA
     Dosage: THREE R ARA C CYCLES
     Route: 065
     Dates: start: 201303, end: 201307
  7. PREDNISONE. [Suspect]
     Active Substance: PREDNISONE
     Indication: MANTLE CELL LYMPHOMA
     Dosage: THREE R CHOP CYCLES
     Route: 065
     Dates: start: 201303, end: 201307
  8. DOXORUBICIN [Suspect]
     Active Substance: DOXORUBICIN
     Indication: MANTLE CELL LYMPHOMA
     Dosage: THREE R CHOP CYCLES
     Route: 065
     Dates: start: 201303, end: 201307
  9. VINCRISTINE [Suspect]
     Active Substance: VINCRISTINE
     Indication: MANTLE CELL LYMPHOMA
     Dosage: THREE R CHOP CYCLES
     Route: 065
     Dates: start: 201303, end: 201307
  10. RITUXIMAB. [Suspect]
     Active Substance: RITUXIMAB
     Dosage: EIGHT MAINTENANCE DOSES, OVER THE NEXT TWO YEARS
     Route: 065
     Dates: start: 201310, end: 201508
  11. RITUXIMAB. [Suspect]
     Active Substance: RITUXIMAB
     Dosage: 6 CYCLES
     Route: 065
     Dates: start: 201608, end: 201701
  12. CYTARABINE. [Suspect]
     Active Substance: CYTARABINE
     Dosage: R DHAP IMMUNOCHEMOTHERAPY, 3 CYCLES
     Route: 065
  13. CYCLOPHOSPHAMIDE. [Suspect]
     Active Substance: CYCLOPHOSPHAMIDE
     Indication: MANTLE CELL LYMPHOMA
     Dosage: THREE R CHOP CYCLES
     Route: 065
     Dates: start: 201303, end: 201307
  14. BENDAMUSTINE [Suspect]
     Active Substance: BENDAMUSTINE
     Indication: MANTLE CELL LYMPHOMA
     Dosage: 6 CYCLES
     Route: 065
     Dates: start: 201608, end: 201701

REACTIONS (3)
  - Mantle cell lymphoma refractory [Unknown]
  - Drug ineffective [Unknown]
  - Mantle cell lymphoma recurrent [Unknown]
